FAERS Safety Report 6174662-5 (Version None)
Quarter: 2009Q2

REPORT INFORMATION
  Report Type: 
  Country: None (occurrence: None)
  Receive Date: 20090430
  Receipt Date: 20090421
  Transmission Date: 20091009
  Serious: Yes (Death)
  Sender: FDA-Public Use
  Company Number: IN-BAXTER-2009BH000637

PATIENT
  Age: 75 Year
  Sex: Female
  Weight: 60 kg

DRUGS (10)
  1. DIANEAL [Suspect]
     Indication: RENAL FAILURE CHRONIC
     Route: 033
     Dates: start: 20090101, end: 20090109
  2. DIANEAL [Suspect]
     Route: 033
     Dates: start: 20090101, end: 20090109
  3. DIANEAL [Suspect]
     Route: 033
     Dates: start: 20061001, end: 20090101
  4. MIXTARD HUMAN 70/30 [Concomitant]
     Indication: DRUG USE FOR UNKNOWN INDICATION
     Route: 065
     Dates: end: 20090109
  5. CARLOC [Concomitant]
     Indication: DRUG USE FOR UNKNOWN INDICATION
     Route: 065
     Dates: end: 20090109
  6. APRESOL [Concomitant]
     Indication: DRUG USE FOR UNKNOWN INDICATION
     Route: 065
     Dates: end: 20090109
  7. NEORECORMON [Concomitant]
     Indication: DRUG USE FOR UNKNOWN INDICATION
     Route: 065
     Dates: end: 20090109
  8. ATROVA [Concomitant]
     Indication: DRUG USE FOR UNKNOWN INDICATION
     Route: 065
     Dates: end: 20090109
  9. PAN 40 [Concomitant]
     Indication: DRUG USE FOR UNKNOWN INDICATION
     Route: 065
     Dates: end: 20090109
  10. ACITROM [Concomitant]
     Indication: DRUG USE FOR UNKNOWN INDICATION
     Route: 065
     Dates: end: 20090109

REACTIONS (1)
  - CARDIAC ARREST [None]
